FAERS Safety Report 17235225 (Version 1)
Quarter: 2020Q1

REPORT INFORMATION
  Report Type: Report from Study
  Country: MW (occurrence: MW)
  Receive Date: 20200106
  Receipt Date: 20200106
  Transmission Date: 20200409
  Serious: Yes (Hospitalization, Other)
  Sender: FDA-Public Use
  Company Number: MW-AUROBINDO-AUR-APL-2019-107955

PATIENT
  Age: 24 Year
  Sex: Female

DRUGS (1)
  1. NEVIRAPINE. [Suspect]
     Active Substance: NEVIRAPINE
     Indication: HIV INFECTION
     Dosage: UNK
     Route: 065

REACTIONS (6)
  - Stevens-Johnson syndrome [Unknown]
  - Conjunctivalisation [Unknown]
  - Dry eye [Unknown]
  - Visual acuity reduced [Unknown]
  - Ulcerative keratitis [Unknown]
  - Ocular discomfort [Recovered/Resolved]
